FAERS Safety Report 8142593-7 (Version None)
Quarter: 2012Q1

REPORT INFORMATION
  Report Type: 
  Country: None (occurrence: None)
  Receive Date: 20120216
  Receipt Date: 20120207
  Transmission Date: 20120608
  Serious: Yes (Hospitalization, Other)
  Sender: FDA-Public Use
  Company Number: GB-BRACCO-000467

PATIENT
  Age: 72 Year
  Sex: Male

DRUGS (3)
  1. SIMVASTATIN [Concomitant]
  2. IOPAMIDOL [Suspect]
     Indication: COMPUTERISED TOMOGRAM
     Route: 042
     Dates: start: 20120123, end: 20120123
  3. OLMESARTAN [Concomitant]

REACTIONS (4)
  - HYPOVOLAEMIC SHOCK [None]
  - RENAL FAILURE ACUTE [None]
  - HYPOTENSION [None]
  - MALAISE [None]
